FAERS Safety Report 10388144 (Version 11)
Quarter: 2015Q1

REPORT INFORMATION
  Report Type: Spontaneous
  Country: US (occurrence: US)
  Receive Date: 20140815
  Receipt Date: 20150327
  Transmission Date: 20150720
  Serious: No
  Sender: FDA-Public Use
  Company Number: US-009507513-2009SP038137

PATIENT
  Age: 27 Year
  Sex: Female
  Weight: 55.78 kg

DRUGS (4)
  1. ADVAIR HFA [Concomitant]
     Active Substance: FLUTICASONE PROPIONATE\SALMETEROL XINAFOATE
  2. ALBUTEROL. [Concomitant]
     Active Substance: ALBUTEROL
  3. IMPLANON [Suspect]
     Active Substance: ETONOGESTREL
     Indication: CONTRACEPTION
     Dosage: 1 DF, UNKNOWN, IN LEFT ARM
     Dates: start: 20091117
  4. ALLEGRA-D [Concomitant]
     Active Substance: FEXOFENADINE\PSEUDOEPHEDRINE

REACTIONS (12)
  - Dysuria [Unknown]
  - Uterine haemorrhage [Unknown]
  - Urinary tract infection [Unknown]
  - Menstruation irregular [Unknown]
  - Hypomenorrhoea [Not Recovered/Not Resolved]
  - Device dislocation [Unknown]
  - Muscle spasms [Unknown]
  - Incorrect drug administration duration [Unknown]
  - Dyspareunia [Unknown]
  - Metrorrhagia [Unknown]
  - Medical device complication [Recovered/Resolved]
  - Vulvovaginal discomfort [Unknown]

NARRATIVE: CASE EVENT DATE: 2012
